FAERS Safety Report 10082058 (Version 1)
Quarter: 2014Q2

REPORT INFORMATION
  Report Type: Spontaneous
  Country: US (occurrence: None)
  Receive Date: 20140414
  Receipt Date: 20140414
  Transmission Date: 20141212
  Serious: Yes (Other)
  Sender: FDA-Public Use
  Company Number: UTC-046883

PATIENT
  Age: 68 Year
  Sex: Male
  Weight: 101.6 kg

DRUGS (1)
  1. TYVASO [Suspect]
     Indication: COR PULMONALE CHRONIC
     Route: 055
     Dates: start: 20131118

REACTIONS (3)
  - Oxygen saturation decreased [None]
  - Dyspnoea [None]
  - Fatigue [None]
